FAERS Safety Report 15365063 (Version 16)
Quarter: 2023Q1

REPORT INFORMATION
  Report Type: Other
  Country: DE (occurrence: None)
  Receive Date: 20180910
  Receipt Date: 20230306
  Transmission Date: 20230418
  Serious: Yes (Other)
  Sender: FDA-Public Use
  Company Number: DE-ROCHE-2110206

PATIENT
  Age: 28 Year
  Sex: Female
  Weight: 62 kg

DRUGS (18)
  1. OCREVUS [Suspect]
     Active Substance: OCRELIZUMAB
     Indication: Relapsing-remitting multiple sclerosis
     Dosage: 600 MG IN 169 DAYS
     Route: 042
     Dates: start: 20180315, end: 20180315
  2. OCREVUS [Suspect]
     Active Substance: OCRELIZUMAB
     Dosage: SECOND INFUSION
     Route: 042
     Dates: start: 20180329, end: 20180329
  3. OCREVUS [Suspect]
     Active Substance: OCRELIZUMAB
     Dosage: 24/SEP/2019
     Route: 042
     Dates: start: 20180906
  4. OCREVUS [Suspect]
     Active Substance: OCRELIZUMAB
     Route: 042
     Dates: start: 20190924
  5. CORTISONE [Suspect]
     Active Substance: CORTISONE
     Indication: Premedication
     Route: 065
     Dates: start: 20190924
  6. LAMOTRIGINE [Concomitant]
     Active Substance: LAMOTRIGINE
     Indication: Epilepsy
     Dosage: 1-0-1
  7. LAMOTRIGINE [Concomitant]
     Active Substance: LAMOTRIGINE
     Dosage: 175-0-200 MG
  8. LAMOTRIGINE [Concomitant]
     Active Substance: LAMOTRIGINE
     Route: 046
  9. LAMOTRIGINE [Concomitant]
     Active Substance: LAMOTRIGINE
  10. LAMOTRIGINE [Concomitant]
     Active Substance: LAMOTRIGINE
     Dosage: 1-0-1
  11. CHOLECALCIFEROL [Concomitant]
     Active Substance: CHOLECALCIFEROL
  12. PANTOPRAZOLE SODIUM [Concomitant]
     Active Substance: PANTOPRAZOLE SODIUM
  13. IVABRADINE [Concomitant]
     Active Substance: IVABRADINE
  14. DALFAMPRIDINE [Concomitant]
     Active Substance: DALFAMPRIDINE
  15. TOLPERISONE [Concomitant]
     Active Substance: TOLPERISONE
  16. GABAPENTIN [Concomitant]
     Active Substance: GABAPENTIN
  17. VENLAFAXINE HYDROCHLORIDE [Concomitant]
     Active Substance: VENLAFAXINE HYDROCHLORIDE
  18. BRIVARACETAM [Concomitant]
     Active Substance: BRIVARACETAM
     Dosage: 1-0-1

REACTIONS (21)
  - Epilepsy [Recovered/Resolved]
  - Epilepsy [Recovered/Resolved]
  - Fatigue [Recovered/Resolved]
  - Food craving [Recovered/Resolved]
  - Middle insomnia [Recovered/Resolved]
  - Drug level fluctuating [Recovered/Resolved]
  - Band neutrophil count decreased [Recovered/Resolved]
  - Neutrophil count decreased [Recovered/Resolved]
  - Eosinophil count increased [Recovered/Resolved]
  - Basophil count decreased [Recovered/Resolved]
  - Monocyte count increased [Recovered/Resolved]
  - Myelocyte present [Unknown]
  - Blast cells present [Unknown]
  - Lymphopenia [Unknown]
  - Nasopharyngitis [Recovered/Resolved]
  - Skin reaction [Recovered/Resolved]
  - Fatigue [Recovered/Resolved]
  - Food craving [Recovered/Resolved]
  - Granulocyte count increased [Recovered/Resolved]
  - Granulocyte count decreased [Recovered/Resolved]
  - Coronavirus infection [Unknown]

NARRATIVE: CASE EVENT DATE: 20180315
